FAERS Safety Report 16416211 (Version 1)
Quarter: 2019Q2

REPORT INFORMATION
  Report Type: Spontaneous
  Country: US (occurrence: US)
  Receive Date: 20190611
  Receipt Date: 20190611
  Transmission Date: 20190711
  Serious: Yes (Hospitalization)
  Sender: FDA-Public Use
  Company Number: US-TRIS PHARMA, INC.-19US000004

PATIENT

DRUGS (2)
  1. IBUPROFEN. [Suspect]
     Active Substance: IBUPROFEN
     Indication: INFECTION
  2. IBUPROFEN. [Suspect]
     Active Substance: IBUPROFEN
     Indication: EAR PAIN
     Dosage: 5 MILLILITER, Q 6 HR
     Route: 065
     Dates: start: 20190429

REACTIONS (3)
  - Pyrexia [Recovered/Resolved]
  - Product use in unapproved indication [None]
  - Incorrect dose administered [None]

NARRATIVE: CASE EVENT DATE: 201905
